FAERS Safety Report 5404346-X (Version None)
Quarter: 2007Q3

REPORT INFORMATION
  Report Type: 
  Country: None (occurrence: None)
  Receive Date: 20070802
  Receipt Date: 20070724
  Transmission Date: 20080115
  Serious: Yes (Hospitalization)
  Sender: FDA-Public Use
  Company Number: PL-PFIZER INC-2006076041

PATIENT
  Sex: Male
  Weight: 74 kg

DRUGS (16)
  1. SU-011,248 [Suspect]
     Indication: RENAL CELL CARCINOMA STAGE UNSPECIFIED
     Route: 048
     Dates: start: 20060419, end: 20060517
  2. TORECAN [Concomitant]
     Route: 058
     Dates: start: 20060529, end: 20060609
  3. SPIRONOL [Concomitant]
     Route: 048
     Dates: start: 20060529, end: 20060609
  4. FUROSEMIDE [Concomitant]
     Route: 042
     Dates: start: 20060529
  5. FUROSEMIDE [Concomitant]
     Route: 048
  6. GLUCOSE [Concomitant]
     Route: 042
     Dates: start: 20060529, end: 20060609
  7. SODIUM CHLORIDE [Concomitant]
     Route: 042
     Dates: start: 20060529, end: 20060609
  8. ACTRAPID [Concomitant]
     Route: 058
     Dates: start: 20060529, end: 20060609
  9. CALCIUM CHLORIDE [Concomitant]
     Route: 042
     Dates: start: 20060529, end: 20060609
  10. FLUDROCORTISONE ACETATE [Concomitant]
     Route: 048
     Dates: start: 20060529, end: 20060609
  11. HYDROCORTISON [Concomitant]
     Route: 042
     Dates: start: 20060529, end: 20060609
  12. LANZUL [Concomitant]
     Route: 048
     Dates: start: 20060529
  13. TRAMADOL HCL [Concomitant]
     Route: 048
     Dates: start: 20060529
  14. ACETAMINOPHEN [Concomitant]
     Route: 048
     Dates: start: 20060529, end: 20060609
  15. KETONAL [Concomitant]
     Route: 048
     Dates: start: 20060529
  16. BLOOD AND RELATED PRODUCTS [Concomitant]
     Route: 042

REACTIONS (4)
  - ANAEMIA [None]
  - ASCITES [None]
  - CACHEXIA [None]
  - RENAL FAILURE [None]
